FAERS Safety Report 14189286 (Version 1)
Quarter: 2017Q4

REPORT INFORMATION
  Report Type: Report from Study
  Country: CN (occurrence: CN)
  Receive Date: 20171115
  Receipt Date: 20171115
  Transmission Date: 20180321
  Serious: Yes (Other)
  Sender: FDA-Public Use
  Company Number: CN-ROCHE-1914073

PATIENT
  Sex: Male
  Weight: 60 kg

DRUGS (2)
  1. AVASTIN [Suspect]
     Active Substance: BEVACIZUMAB
     Route: 041
  2. AVASTIN [Suspect]
     Active Substance: BEVACIZUMAB
     Indication: RECTAL CANCER
     Route: 041
     Dates: start: 20160809, end: 20170323

REACTIONS (8)
  - Cerebrovascular accident [Unknown]
  - Anal haemorrhage [Unknown]
  - Device occlusion [Unknown]
  - Diarrhoea [Recovered/Resolved]
  - Gait disturbance [Unknown]
  - Anal abscess [Recovering/Resolving]
  - Product intolerance [Unknown]
  - Discomfort [Unknown]
